FAERS Safety Report 9664651 (Version 1)
Quarter: 2013Q4

REPORT INFORMATION
  Report Type: Spontaneous
  Country: TR (occurrence: None)
  Receive Date: 20131031
  Receipt Date: 20131031
  Transmission Date: 20140711
  Serious: Yes (Hospitalization)
  Sender: FDA-Public Use
  Company Number: IMP_06863_2013

PATIENT
  Age: 39 Year
  Sex: Female

DRUGS (2)
  1. CHLOROQUINE [Suspect]
     Indication: RHEUMATOID ARTHRITIS
  2. SULFASALAZINE (SULFASALAZINE) [Suspect]
     Indication: RHEUMATOID ARTHRITIS

REACTIONS (12)
  - Insomnia [None]
  - Energy increased [None]
  - Suicidal ideation [None]
  - Nervousness [None]
  - Crying [None]
  - Delusion of grandeur [None]
  - Hallucination, auditory [None]
  - Abnormal behaviour [None]
  - Confusional state [None]
  - Paranoia [None]
  - Anxiety [None]
  - Delusional disorder, erotomanic type [None]
